FAERS Safety Report 5128348-6 (Version None)
Quarter: 2006Q4

REPORT INFORMATION
  Report Type: 
  Country: None (occurrence: None)
  Receive Date: 20061011
  Receipt Date: 20060831
  Transmission Date: 20070319
  Serious: Yes (Death)
  Sender: FDA-Public Use
  Company Number: S06-CZE-04218-01

PATIENT
  Age: 63 Year
  Sex: Male

DRUGS (3)
  1. CIPRALEX (ESCITALOPRAM) [Suspect]
     Indication: DEPRESSION
     Dosage: 10 MG QD PO
     Route: 048
     Dates: start: 20010813, end: 20041001
  2. CIPRALEX (ESCITALOPRAM) [Suspect]
     Indication: PSYCHOSOMATIC DISEASE
     Dosage: 10 MG QD PO
     Route: 048
     Dates: start: 20010813, end: 20041001
  3. ANTI-DIABETICS [Concomitant]

REACTIONS (1)
  - MYOCARDIAL INFARCTION [None]
